FAERS Safety Report 10732557 (Version 1)
Quarter: 2015Q1

REPORT INFORMATION
  Report Type: Spontaneous
  Country: FR (occurrence: None)
  Receive Date: 20150120
  Receipt Date: 20150120
  Transmission Date: 20150721
  Serious: Yes (Hospitalization)
  Sender: FDA-Public Use
  Company Number: COR_00220_2015

PATIENT
  Age: 56 Year
  Sex: Male

DRUGS (2)
  1. LOMUSTINE (LOMUSTINE) [Suspect]
     Active Substance: LOMUSTINE
     Indication: BRAIN NEOPLASM
     Dosage: DF 5 MONTHS UNTIL NOT CONTINUING?
  2. BEVACIZUMAB [Concomitant]
     Active Substance: BEVACIZUMAB

REACTIONS (1)
  - Hepatitis acute [None]
